FAERS Safety Report 5332393-5 (Version None)
Quarter: 2007Q2

REPORT INFORMATION
  Report Type: 
  Country: None (occurrence: None)
  Receive Date: 20070521
  Receipt Date: 20070521
  Transmission Date: 20071010
  Serious: No
  Sender: FDA-Public Use
  Company Number: None

PATIENT
  Age: 51 Year
  Sex: Male
  Weight: 86.1834 kg

DRUGS (8)
  1. EMSAM [Suspect]
     Dosage: 1 PATCH ONCE DAILY TOPICAL
     Route: 061
     Dates: start: 20060201
  2. PLAVIX [Concomitant]
  3. ZANTAC [Concomitant]
  4. SEROQUEL [Concomitant]
  5. XANAX [Concomitant]
  6. LIPITOR [Concomitant]
  7. CLONIPINE [Concomitant]
  8. ASPIRIN [Concomitant]

REACTIONS (2)
  - BLOOD PRESSURE FLUCTUATION [None]
  - PHARMACEUTICAL PRODUCT COMPLAINT [None]
